FAERS Safety Report 16575529 (Version 3)
Quarter: 2021Q1

REPORT INFORMATION
  Report Type: Spontaneous
  Country: US (occurrence: US)
  Receive Date: 20190716
  Receipt Date: 20210212
  Transmission Date: 20210419
  Serious: Yes (Other)
  Sender: FDA-Public Use
  Company Number: US-ELI_LILLY_AND_COMPANY-US201907007254

PATIENT
  Sex: Male

DRUGS (1)
  1. HUMALOG [Suspect]
     Active Substance: INSULIN LISPRO
     Indication: TYPE 2 DIABETES MELLITUS
     Dosage: UNK, DAILY (PRN)
     Route: 058

REACTIONS (4)
  - Cognitive disorder [Unknown]
  - Diabetic wound [Not Recovered/Not Resolved]
  - Blood glucose increased [Recovered/Resolved]
  - Craniocerebral injury [Not Recovered/Not Resolved]
